FAERS Safety Report 13013366 (Version 2)
Quarter: 2017Q2

REPORT INFORMATION
  Report Type: Spontaneous
  Country: US (occurrence: US)
  Receive Date: 20161209
  Receipt Date: 20170412
  Transmission Date: 20170830
  Serious: Yes (Death, Hospitalization)
  Sender: FDA-Public Use
  Company Number: US-KERYX BIOPHARMACEUTICALS, INC.-2016US002397

PATIENT
  Sex: Male

DRUGS (1)
  1. AURYXIA [Suspect]
     Active Substance: TETRAFERRIC TRICITRATE DECAHYDRATE
     Indication: PRODUCT USED FOR UNKNOWN INDICATION
     Dosage: UNK
     Dates: end: 20160731

REACTIONS (6)
  - Cardiac arrest [Fatal]
  - Fall [Unknown]
  - Hyperparathyroidism secondary [Unknown]
  - Hip fracture [Unknown]
  - Respiratory failure [Fatal]
  - Pulmonary embolism [Fatal]
